APPROVED DRUG PRODUCT: CIPROFLOXACIN
Active Ingredient: CIPROFLOXACIN
Strength: 400MG/40ML (10MG/ML)
Dosage Form/Route: INJECTABLE;INJECTION
Application: A076484 | Product #002
Applicant: FRESENIUS KABI USA LLC
Approved: Aug 28, 2006 | RLD: No | RS: No | Type: DISCN